FAERS Safety Report 15504913 (Version 5)
Quarter: 2019Q4

REPORT INFORMATION
  Report Type: Spontaneous
  Country: US (occurrence: US)
  Receive Date: 20181016
  Receipt Date: 20191015
  Transmission Date: 20200122
  Serious: Yes (Other)
  Sender: FDA-Public Use
  Company Number: US-SA-2018SA285078

PATIENT
  Age: 13 Year
  Sex: Female
  Weight: 118 kg

DRUGS (18)
  1. ATARAX [Concomitant]
     Active Substance: HYDROXYZINE HYDROCHLORIDE
     Indication: PREMEDICATION
     Dosage: 10 MG, UNK
     Route: 048
     Dates: start: 20181012
  2. ARNUITY ELLIPTA [Concomitant]
     Active Substance: FLUTICASONE FUROATE
     Dosage: 1 DF, QD
     Route: 055
     Dates: start: 20190610
  3. SODIUM CHLORIDE. [Concomitant]
     Active Substance: SODIUM CHLORIDE
     Dosage: 0.9 %, UNK
     Route: 042
     Dates: start: 20181012
  4. HEPARIN [Concomitant]
     Active Substance: HEPARIN SODIUM
     Dosage: 100 ML, UNK
     Route: 042
     Dates: start: 20190425
  5. EPINEPHRINE. [Concomitant]
     Active Substance: EPINEPHRINE
     Indication: ANAPHYLACTIC REACTION
     Dosage: 0.3 MG, UNK
     Route: 030
     Dates: start: 20181012
  6. SINGULAIR [Concomitant]
     Active Substance: MONTELUKAST SODIUM
     Dosage: DOSE: 1 TAB QD
     Route: 048
     Dates: start: 20151012
  7. STERILE WATER [Concomitant]
     Active Substance: WATER
     Dosage: 1 DF, UNK
     Route: 042
     Dates: start: 20181012
  8. CARBAMAZEPINE. [Concomitant]
     Active Substance: CARBAMAZEPINE
     Dosage: DOSE: 1 TAB, BID
     Route: 048
     Dates: start: 20170823
  9. LORATADINE. [Concomitant]
     Active Substance: LORATADINE
     Dosage: DOSE: 1 TAB
     Route: 048
     Dates: start: 20151012
  10. FABRAZYME [Suspect]
     Active Substance: AGALSIDASE BETA
     Indication: FABRY^S DISEASE
     Dosage: 55 MG, QOW
     Route: 042
     Dates: start: 20151019
  11. STERILE WATER [Concomitant]
     Active Substance: WATER
     Dosage: 0.90 %, UNK
     Route: 042
     Dates: start: 20190425
  12. LMX 4 [Concomitant]
     Indication: PREMEDICATION
     Dosage: 1 DF, PRN
     Route: 061
     Dates: start: 20181008
  13. SODIUM CHLORIDE. [Concomitant]
     Active Substance: SODIUM CHLORIDE
     Dosage: 0.9 %, UNK
     Route: 042
     Dates: start: 20190425
  14. ALBUTEROL [SALBUTAMOL] [Concomitant]
     Active Substance: ALBUTEROL
     Dosage: 1 DF, UNK
     Route: 055
     Dates: start: 20180313
  15. ACETAMINOPHEN. [Concomitant]
     Active Substance: ACETAMINOPHEN
     Indication: PREMEDICATION
     Dosage: 325 MG, PRN
     Route: 048
     Dates: start: 20181012
  16. ACETAMINOPHEN. [Concomitant]
     Active Substance: ACETAMINOPHEN
     Dosage: 325 MG, PRN
     Route: 048
     Dates: start: 20190425
  17. HEPARIN [Concomitant]
     Active Substance: HEPARIN SODIUM
     Dosage: UNK UNK, UNK
     Route: 042
     Dates: start: 20181012
  18. NORMAL SALINE [Concomitant]
     Active Substance: SODIUM CHLORIDE
     Dosage: UNK, UNK
     Route: 042
     Dates: start: 20181012

REACTIONS (3)
  - Infusion site infection [Unknown]
  - Pneumonia [Unknown]
  - Headache [Unknown]
